FAERS Safety Report 6805367-2 (Version None)
Quarter: 2010Q2

REPORT INFORMATION
  Report Type: 
  Country: None (occurrence: None)
  Receive Date: 20100628
  Receipt Date: 20100628
  Transmission Date: 20101027
  Serious: Yes (Life-Threatening, Hospitalization, Disabling)
  Sender: FDA-Public Use
  Company Number: None

PATIENT
  Age: 74 Year
  Sex: Male
  Weight: 78.6 kg

DRUGS (2)
  1. BENICAR HCT [Suspect]
     Indication: HYPERTENSION
     Dosage: 40MG/25MG DAILY
     Dates: start: 20080515, end: 20080721
  2. BENICAR [Suspect]
     Indication: HYPERTENSION
     Dosage: 40MG DAILY
     Dates: start: 20080722, end: 20091114

REACTIONS (6)
  - ATRIAL FIBRILLATION [None]
  - BLOOD CREATININE INCREASED [None]
  - BLOOD POTASSIUM INCREASED [None]
  - BLOOD UREA INCREASED [None]
  - NEPHROPATHY [None]
  - SICK SINUS SYNDROME [None]
